FAERS Safety Report 8193984-X (Version None)
Quarter: 2012Q1

REPORT INFORMATION
  Report Type: 
  Country: None (occurrence: None)
  Receive Date: 20120308
  Receipt Date: 20120229
  Transmission Date: 20120608
  Serious: Yes (Life-Threatening, Hospitalization)
  Sender: FDA-Public Use
  Company Number: US-BAYER-2011-001513

PATIENT
  Age: 39 Year
  Sex: Female
  Weight: 69.388 kg

DRUGS (3)
  1. LEXAPRO [Concomitant]
  2. YAZ [Suspect]
     Indication: PREMENSTRUAL SYNDROME
  3. YAZ [Suspect]
     Indication: ORAL CONTRACEPTION
     Dosage: UNK
     Dates: start: 20080901, end: 20091101

REACTIONS (5)
  - DEEP VEIN THROMBOSIS [None]
  - ANXIETY [None]
  - PULMONARY EMBOLISM [None]
  - RENAL VEIN THROMBOSIS [None]
  - PAIN [None]
